FAERS Safety Report 4711777-X (Version None)
Quarter: 2005Q3

REPORT INFORMATION
  Report Type: 
  Country: None (occurrence: None)
  Receive Date: 20050711
  Receipt Date: 20050711
  Transmission Date: 20060218
  Serious: Yes (Disabling)
  Sender: FDA-Public Use
  Company Number: None

PATIENT
  Age: 42 Year
  Sex: Male
  Weight: 111.1313 kg

DRUGS (1)
  1. ZICAM 2X [Suspect]
     Indication: NASOPHARYNGITIS
     Dosage: 1 PUMP 3 TIMES PER DA ENDOSINUSI
     Route: 006
     Dates: start: 20050621, end: 20050701

REACTIONS (2)
  - AGEUSIA [None]
  - ANOSMIA [None]
